FAERS Safety Report 18292121 (Version 1)
Quarter: 2020Q3

REPORT INFORMATION
  Report Type: Spontaneous
  Country: CA (occurrence: CA)
  Receive Date: 20200922
  Receipt Date: 20200922
  Transmission Date: 20201103
  Serious: Yes (Hospitalization)
  Sender: FDA-Public Use
  Company Number: CA-TEVA-2020-CA-1830040

PATIENT
  Age: 58 Year
  Sex: Male
  Weight: 82 kg

DRUGS (20)
  1. DOXORUBICIN HYDROCHLORIDE INJECTION [Suspect]
     Active Substance: DOXORUBICIN HYDROCHLORIDE
     Indication: HODGKIN^S DISEASE
  2. PREDNISONE. [Suspect]
     Active Substance: PREDNISONE
  3. DEXAMETHASONE. [Concomitant]
     Active Substance: DEXAMETHASONE
     Route: 065
  4. ONDANSETRON [Concomitant]
     Active Substance: ONDANSETRON
  5. ETOPOSIDE. [Suspect]
     Active Substance: ETOPOSIDE
  6. PROCARBAZINE [Suspect]
     Active Substance: PROCARBAZINE
  7. FAMOTIDINE. [Concomitant]
     Active Substance: FAMOTIDINE
  8. LORAZEPAM. [Concomitant]
     Active Substance: LORAZEPAM
  9. PROCHLORPERAZINE. [Concomitant]
     Active Substance: PROCHLORPERAZINE
  10. STEMETIL [Concomitant]
     Active Substance: PROCHLORPERAZINE
  11. CALCIUM [Concomitant]
     Active Substance: CALCIUM
  12. GRASTOFIL SINGLE USE PRE?FILLED SYRINGE [Concomitant]
     Active Substance: FILGRASTIM
  13. TAMSULOSIN [Concomitant]
     Active Substance: TAMSULOSIN
  14. VALACYCLOVIR [Concomitant]
     Active Substance: VALACYCLOVIR HYDROCHLORIDE
  15. CYCLOPHOSPHAMIDE. [Suspect]
     Active Substance: CYCLOPHOSPHAMIDE
  16. FRAGMIN [Concomitant]
     Active Substance: DALTEPARIN SODIUM
  17. VINCRISTINE SULFATE. [Suspect]
     Active Substance: VINCRISTINE SULFATE
  18. BLEOMYCIN SULPHATE FOR INJECTION USP [Suspect]
     Active Substance: BLEOMYCIN SULFATE
  19. ACETAMINOPHEN. [Concomitant]
     Active Substance: ACETAMINOPHEN
  20. SULFAMETHOXAZOLE AND TRIMETHOPRIM [Concomitant]
     Active Substance: SULFAMETHOXAZOLE\TRIMETHOPRIM

REACTIONS (1)
  - Febrile neutropenia [Recovered/Resolved]
